FAERS Safety Report 25252284 (Version 1)
Quarter: 2025Q2

REPORT INFORMATION
  Report Type: Spontaneous
  Country: HR (occurrence: HR)
  Receive Date: 20250429
  Receipt Date: 20250429
  Transmission Date: 20250716
  Serious: Yes (Death, Hospitalization, Other)
  Sender: MYLAN
  Company Number: HR-TEVA-VS-3322696

PATIENT
  Age: 73 Year
  Sex: Male

DRUGS (4)
  1. SORAFENIB [Suspect]
     Active Substance: SORAFENIB
     Indication: Hepatic cancer
     Dates: start: 20241201, end: 20250411
  2. SORAFENIB [Suspect]
     Active Substance: SORAFENIB
     Route: 065
     Dates: start: 20241201, end: 20250411
  3. SORAFENIB [Suspect]
     Active Substance: SORAFENIB
     Route: 065
     Dates: start: 20241201, end: 20250411
  4. SORAFENIB [Suspect]
     Active Substance: SORAFENIB
     Dates: start: 20241201, end: 20250411

REACTIONS (4)
  - Multiple organ dysfunction syndrome [Fatal]
  - Urinary retention [Unknown]
  - Kidney enlargement [Unknown]
  - Back pain [Unknown]

NARRATIVE: CASE EVENT DATE: 20250403
